FAERS Safety Report 15451262 (Version 1)
Quarter: 2018Q3

REPORT INFORMATION
  Report Type: Spontaneous
  Country: US (occurrence: US)
  Receive Date: 20180927
  Receipt Date: 20180927
  Transmission Date: 20181010
  Serious: Yes (Disabling, Other)
  Sender: FDA-Public Use
  Company Number: None

PATIENT
  Age: 52 Year
  Sex: Male
  Weight: 72 kg

DRUGS (1)
  1. FLONASE [Suspect]
     Active Substance: FLUTICASONE PROPIONATE
     Indication: SINUS CONGESTION
     Dosage: ?          QUANTITY:1 SPRAY(S);?
     Route: 055
     Dates: start: 20150902, end: 20180921

REACTIONS (7)
  - Product use issue [None]
  - Fungal infection [None]
  - Dyspnoea [None]
  - Cough [None]
  - Middle insomnia [None]
  - Choking [None]
  - Oropharyngeal pain [None]

NARRATIVE: CASE EVENT DATE: 20180702
